FAERS Safety Report 7337792-8 (Version None)
Quarter: 2011Q1

REPORT INFORMATION
  Report Type: 
  Country: None (occurrence: None)
  Receive Date: 20110308
  Receipt Date: 20110228
  Transmission Date: 20110831
  Serious: Yes (Death, Other)
  Sender: FDA-Public Use
  Company Number: US-ROCHE-670646

PATIENT

DRUGS (2)
  1. TAMIFLU [Suspect]
     Route: 065
  2. TAMIFLU [Suspect]
     Indication: H1N1 INFLUENZA
     Route: 065

REACTIONS (3)
  - DRUG INEFFECTIVE [None]
  - DEATH [None]
  - PATHOGEN RESISTANCE [None]
